FAERS Safety Report 24871810 (Version 1)
Quarter: 2025Q1

REPORT INFORMATION
  Report Type: Other
  Country: US (occurrence: None)
  Receive Date: 20250122
  Receipt Date: 20250122
  Transmission Date: 20250409
  Serious: Yes (Other)
  Sender: DEXCEL LTD.
  Company Number: US-DEXPHARM-2025-0644

PATIENT
  Age: 37 Year
  Sex: Female

DRUGS (6)
  1. DESMOPRESSIN [Concomitant]
     Active Substance: DESMOPRESSIN
     Dosage: DESMOPRESSIN 0.1 MG NIGHTLY
  2. DEXAMETHASONE [Suspect]
     Active Substance: DEXAMETHASONE
     Dosage: DEXAMETHASONE 1.5 MG DAILY
  3. DEXAMETHASONE [Suspect]
     Active Substance: DEXAMETHASONE
     Dosage: HER DEXAMETHASONE DOSE HAD BEEN INCREASED FROM 0.75 MG -1 MG DAILY TO 1.5 MG DAILY OVER THE YEARS...
  4. DEXAMETHASONE [Suspect]
     Active Substance: DEXAMETHASONE
     Dosage: HER DEXAMETHASONE DOSE HAD BEEN INCREASED FROM 0.75 MG -1 MG DAILY TO 1.5 MG DAILY OVER THE YEARS...
  5. LEVOTHYROXINE [Concomitant]
     Active Substance: LEVOTHYROXINE
     Dosage: LEVOTHYROXINE 175 MCG NIGHTLY
  6. ESTRADIOL [Concomitant]
     Active Substance: ESTRADIOL
     Dosage: ESTRADIOL 1 MG DAILY

REACTIONS (3)
  - Cushing^s syndrome [Unknown]
  - Tri-iodothyronine free abnormal [Unknown]
  - Hyperglycaemia [Unknown]
